FAERS Safety Report 6026767-7 (Version None)
Quarter: 2009Q1

REPORT INFORMATION
  Report Type: 
  Country: None (occurrence: None)
  Receive Date: 20090105
  Receipt Date: 20081225
  Transmission Date: 20090719
  Serious: Yes (Hospitalization)
  Sender: FDA-Public Use
  Company Number: JP-JNJFOC-20081206647

PATIENT
  Age: 71 Year
  Sex: Female

DRUGS (7)
  1. FENTANYL CITRATE [Suspect]
     Route: 062
  2. FENTANYL CITRATE [Suspect]
     Route: 062
  3. FENTANYL CITRATE [Suspect]
     Route: 062
  4. FENTANYL CITRATE [Suspect]
     Indication: CANCER PAIN
     Route: 062
  5. RIFAMPICIN [Interacting]
     Indication: TUBERCULOSIS
     Route: 065
  6. OXYCODONE [Suspect]
     Route: 048
  7. OXYCODONE [Suspect]
     Indication: CANCER PAIN
     Route: 048

REACTIONS (6)
  - ABDOMINAL DISTENSION [None]
  - DRUG INTERACTION [None]
  - NAUSEA [None]
  - PAIN [None]
  - PULMONARY TUBERCULOSIS [None]
  - VOMITING [None]
